FAERS Safety Report 14582092 (Version 2)
Quarter: 2018Q1

REPORT INFORMATION
  Report Type: Spontaneous
  Country: US (occurrence: US)
  Receive Date: 20180228
  Receipt Date: 20180305
  Transmission Date: 20180509
  Serious: No
  Sender: FDA-Public Use
  Company Number: US-PFIZER INC-2018080617

PATIENT
  Age: 59 Year
  Sex: Male
  Weight: 78.2 kg

DRUGS (4)
  1. LYRICA [Suspect]
     Active Substance: PREGABALIN
     Dosage: 50 MG, 3X/DAY
     Route: 048
     Dates: start: 2017
  2. LYRICA [Suspect]
     Active Substance: PREGABALIN
     Indication: SPINAL CORD INJURY
     Dosage: 150 MG, 1X/DAY (150 MG ONCE A DAY)
     Dates: start: 2017
  3. ADDERALL [Concomitant]
     Active Substance: AMPHETAMINE ASPARTATE\AMPHETAMINE SULFATE\DEXTROAMPHETAMINE SACCHARATE\DEXTROAMPHETAMINE SULFATE
     Indication: DISTURBANCE IN ATTENTION
     Dosage: 5 MG, 2X/DAY
     Route: 048
     Dates: start: 2016
  4. LYRICA [Suspect]
     Active Substance: PREGABALIN
     Indication: PAIN
     Dosage: 100 MG, 3X/DAY (DOSE TO 100 MG THREE TIMES A DAY)
     Route: 048
     Dates: start: 2017

REACTIONS (4)
  - Drug ineffective [Recovered/Resolved with Sequelae]
  - Intentional product misuse [Not Recovered/Not Resolved]
  - Drug tolerance [Unknown]
  - Weight increased [Not Recovered/Not Resolved]

NARRATIVE: CASE EVENT DATE: 2017
